FAERS Safety Report 23485042 (Version 2)
Quarter: 2024Q1

REPORT INFORMATION
  Report Type: Spontaneous
  Country: CZ (occurrence: CZ)
  Receive Date: 20240206
  Receipt Date: 20240216
  Transmission Date: 20240410
  Serious: Yes (Other)
  Sender: FDA-Public Use
  Company Number: CZ-SANOFI-01905439

PATIENT
  Sex: Female

DRUGS (6)
  1. AUBAGIO [Suspect]
     Active Substance: TERIFLUNOMIDE
     Dosage: 14 MG, QD
     Dates: start: 201504, end: 202401
  2. BISOPROLOL [Concomitant]
     Active Substance: BISOPROLOL\BISOPROLOL FUMARATE
     Indication: Product used for unknown indication
     Dosage: 5 MG, QD
  3. LEVOTHYROXINE SODIUM [Concomitant]
     Active Substance: LEVOTHYROXINE SODIUM
     Dosage: 100 UG, QD
     Route: 065
  4. ZEVESIN [Concomitant]
     Dosage: 5 MG, BID 1-0-1
     Route: 065
  5. UROXAL [FLAVOXATE HYDROCHLORIDE] [Concomitant]
     Dosage: UNK UNK, BID 1-0-1
     Route: 065
  6. DALFAMPRIDINE [Concomitant]
     Active Substance: DALFAMPRIDINE
     Dosage: UNK
     Route: 065
     Dates: start: 202304

REACTIONS (6)
  - Sarcoidosis [Recovered/Resolved]
  - Granulomatous pneumonitis [Unknown]
  - Granuloma [Recovered/Resolved]
  - Cough [Recovered/Resolved]
  - Pleural thickening [Recovered/Resolved]
  - Sarcoid-like reaction [Unknown]
